FAERS Safety Report 17653749 (Version 1)
Quarter: 2020Q2

REPORT INFORMATION
  Report Type: Spontaneous
  Country: GB (occurrence: GB)
  Receive Date: 20200410
  Receipt Date: 20200410
  Transmission Date: 20200713
  Serious: Yes (Other)
  Sender: FDA-Public Use
  Company Number: GB-ROCHE-2577063

PATIENT
  Age: 70 Year
  Sex: Female

DRUGS (1)
  1. ATEZOLIZUMAB. [Suspect]
     Active Substance: ATEZOLIZUMAB
     Indication: NON-SMALL CELL LUNG CANCER METASTATIC
     Route: 065

REACTIONS (5)
  - Hypoxia [Unknown]
  - Pyrexia [Unknown]
  - Cough [Unknown]
  - Pneumonitis [Unknown]
  - Dyspnoea [Unknown]
